FAERS Safety Report 18116452 (Version 3)
Quarter: 2020Q3

REPORT INFORMATION
  Report Type: Spontaneous
  Country: US (occurrence: US)
  Receive Date: 20200806
  Receipt Date: 20200907
  Transmission Date: 20201103
  Serious: Yes (Other)
  Sender: FDA-Public Use
  Company Number: US-ALIMERA SCIENCES INC.-US-A16013-20-004236

PATIENT

DRUGS (3)
  1. ILUVIEN [Suspect]
     Active Substance: FLUOCINOLONE ACETONIDE
     Indication: DIABETIC RETINAL OEDEMA
     Dosage: 0.25 MICROGRAM, QD ? UNKNOWN EYE
     Route: 031
     Dates: start: 20200303, end: 20200528
  2. EYLEA [Concomitant]
     Active Substance: AFLIBERCEPT
     Dosage: UNK
     Dates: start: 20200428
  3. EYLEA [Concomitant]
     Active Substance: AFLIBERCEPT
     Indication: PRODUCT USED FOR UNKNOWN INDICATION
     Dosage: UNK
     Dates: start: 20200324

REACTIONS (6)
  - Rhegmatogenous retinal detachment [Unknown]
  - Vitrectomy [Recovered/Resolved]
  - Sclerotomy [Recovered/Resolved]
  - Device dislocation [Recovered/Resolved]
  - Retinal operation [Recovered/Resolved]
  - Medical device removal [Recovered/Resolved]

NARRATIVE: CASE EVENT DATE: 20200526
